FAERS Safety Report 8931969 (Version 1)
Quarter: 2012Q4

REPORT INFORMATION
  Report Type: 
  Country: AU (occurrence: AU)
  Receive Date: 20121128
  Receipt Date: 20121128
  Transmission Date: 20130627
  Serious: Yes (Hospitalization, Other)
  Sender: FDA-Public Use
  Company Number: AU-ELI_LILLY_AND_COMPANY-AU201211005568

PATIENT
  Sex: Female

DRUGS (1)
  1. FORTEO [Suspect]
     Indication: OSTEOPOROSIS
     Dosage: 20 ug, qd
     Dates: start: 20120202

REACTIONS (4)
  - Cardiac pacemaker insertion [Unknown]
  - Malaise [Not Recovered/Not Resolved]
  - Lethargy [Not Recovered/Not Resolved]
  - Listless [Not Recovered/Not Resolved]
